FAERS Safety Report 7933972-9 (Version None)
Quarter: 2011Q4

REPORT INFORMATION
  Report Type: 
  Country: None (occurrence: None)
  Receive Date: 20111122
  Receipt Date: 20100113
  Transmission Date: 20120403
  Serious: Yes (Hospitalization)
  Sender: FDA-Public Use
  Company Number: PHHY2009TW61133

PATIENT

DRUGS (3)
  1. GLEEVEC [Suspect]
     Indication: CHRONIC MYELOID LEUKAEMIA
     Dosage: 2 PILLS IN THE MORNING AND EVENING
  2. CHEMOTHERAPEUTICS [Concomitant]
  3. SPRYCEL [Concomitant]
     Dosage: 2 PILLS, ONE TIME PER DAY

REACTIONS (4)
  - LABORATORY TEST ABNORMAL [None]
  - PLATELET COUNT INCREASED [None]
  - PYREXIA [None]
  - WHITE BLOOD CELL COUNT DECREASED [None]
